FAERS Safety Report 25225127 (Version 1)
Quarter: 2025Q2

REPORT INFORMATION
  Report Type: Spontaneous
  Country: US (occurrence: US)
  Receive Date: 20250422
  Receipt Date: 20250422
  Transmission Date: 20250717
  Serious: No
  Sender: BLUEPRINT MEDICINES
  Company Number: US-Blueprint Medicines Corporation-2025-AER-00802

PATIENT

DRUGS (4)
  1. AYVAKIT [Suspect]
     Active Substance: AVAPRITINIB
     Indication: Advanced systemic mastocytosis
     Route: 048
  2. AYVAKIT [Suspect]
     Active Substance: AVAPRITINIB
     Indication: Chronic myeloid leukaemia
  3. DECITABINE [Suspect]
     Active Substance: DECITABINE
     Indication: Advanced systemic mastocytosis
     Route: 048
  4. DECITABINE [Suspect]
     Active Substance: DECITABINE
     Indication: Chronic myeloid leukaemia

REACTIONS (1)
  - Off label use [Unknown]
